FAERS Safety Report 14022198 (Version 1)
Quarter: 2017Q3

REPORT INFORMATION
  Report Type: Spontaneous
  Country: US (occurrence: None)
  Receive Date: 20170928
  Receipt Date: 20170928
  Transmission Date: 20171128
  Serious: No
  Sender: FDA-Public Use
  Company Number: None

PATIENT
  Age: 49 Year
  Sex: Male

DRUGS (1)
  1. EPCLUSA [Suspect]
     Active Substance: SOFOSBUVIR\VELPATASVIR

REACTIONS (6)
  - Oral herpes [None]
  - Peripheral swelling [None]
  - Muscle spasms [None]
  - Nausea [None]
  - Fatigue [None]
  - Insomnia [None]

NARRATIVE: CASE EVENT DATE: 20170928
